FAERS Safety Report 5041352-1 (Version None)
Quarter: 2006Q2

REPORT INFORMATION
  Report Type: 
  Country: None (occurrence: None)
  Receive Date: 20060601
  Receipt Date: 20060221
  Transmission Date: 20061013
  Serious: No
  Sender: FDA-Public Use
  Company Number: 2006PV009047

PATIENT
  Age: 58 Year
  Sex: Female
  Weight: 113.3993 kg

DRUGS (4)
  1. BYETTA [Suspect]
     Indication: DIABETES MELLITUS NON-INSULIN-DEPENDENT
     Dosage: SEE IMAGE
     Route: 058
     Dates: start: 20060102, end: 20060201
  2. BYETTA [Suspect]
     Indication: DIABETES MELLITUS NON-INSULIN-DEPENDENT
     Dosage: SEE IMAGE
     Route: 058
     Dates: start: 20060202, end: 20060215
  3. AMARYL [Concomitant]
  4. ACTOS [Concomitant]

REACTIONS (6)
  - DIARRHOEA [None]
  - EAR PAIN [None]
  - HEADACHE [None]
  - NAUSEA [None]
  - TOOTHACHE [None]
  - VISION BLURRED [None]
